FAERS Safety Report 23144283 (Version 5)
Quarter: 2023Q4

REPORT INFORMATION
  Report Type: Spontaneous
  Country: DK (occurrence: DK)
  Receive Date: 20231103
  Receipt Date: 20231208
  Transmission Date: 20240109
  Serious: Yes (Hospitalization)
  Sender: FDA-Public Use
  Company Number: DK-009507513-2311DNK000595

PATIENT
  Age: 69 Year
  Sex: Female
  Weight: 65.7 kg

DRUGS (18)
  1. PEMBROLIZUMAB [Suspect]
     Active Substance: PEMBROLIZUMAB
     Indication: Chronic lymphocytic leukaemia
     Dosage: 200 MILLIGRAM
     Route: 042
     Dates: start: 20231017
  2. METFORMIN [Concomitant]
     Active Substance: METFORMIN HYDROCHLORIDE
     Indication: Type 2 diabetes mellitus
     Dosage: 500 MILLIGRAM, BID
     Route: 048
     Dates: start: 20171212
  3. ENTECAVIR [Concomitant]
     Active Substance: ENTECAVIR
     Indication: Hepatitis B
     Dosage: 0.5 MILLIGRAM, QD
     Route: 048
     Dates: start: 20211004
  4. VAGIFEM [Concomitant]
     Active Substance: ESTRADIOL
     Indication: Menopausal symptoms
     Dosage: 10 MILLIEQUIVALENT DAILY
     Route: 067
     Dates: start: 20220225
  5. TRAMADOL HYDROCHLORIDE [Concomitant]
     Active Substance: TRAMADOL HYDROCHLORIDE
     Indication: Analgesic therapy
     Dosage: TOTAL DAILY DOSE: 100 MG, PRN
     Route: 048
     Dates: start: 20220522
  6. POTASSIUM CHLORIDE [Concomitant]
     Active Substance: POTASSIUM CHLORIDE
     Indication: Electrolyte imbalance
     Dosage: 750 MILLIGRAM, BID
     Route: 048
     Dates: start: 20220910
  7. VITAMINS NOS [Concomitant]
     Active Substance: VITAMINS
     Indication: Vitamin supplementation
     Dosage: 1 TABLET, QD; STRENGTH: 1 TABLET
     Route: 048
     Dates: start: 20221006
  8. POLYETHYLENE GLYCOLS [Concomitant]
     Active Substance: POLYETHYLENE GLYCOLS
     Indication: Constipation
     Dosage: 1 BAG DAILY, PRN; STRENGTH: 1 BAG
     Route: 048
     Dates: start: 20221010
  9. SODIUM PICOSULFATE [Concomitant]
     Active Substance: SODIUM PICOSULFATE
     Indication: Defaecation disorder
     Dosage: 7.5 MG DAILY; PRN
     Route: 048
     Dates: start: 20221010
  10. CALCIUM\CHOLECALCIFEROL [Concomitant]
     Active Substance: CALCIUM\CHOLECALCIFEROL
     Indication: Vitamin supplementation
     Dosage: 500 MILLIGRAM, BID
     Route: 048
     Dates: start: 20221011
  11. CALCIUM\CHOLECALCIFEROL [Concomitant]
     Active Substance: CALCIUM\CHOLECALCIFEROL
     Indication: Prophylaxis
  12. LACTULOSE [Concomitant]
     Active Substance: LACTULOSE
     Indication: Constipation
     Dosage: TOTAL DAILY DOSE 15 ML, PRN
     Route: 048
     Dates: start: 20221228
  13. COSOPT IMULTI [Concomitant]
     Indication: Cataract
     Dosage: TOTAL DAILY DOSE 2 U; STRENGTH: 20 U
     Route: 047
     Dates: start: 20230314
  14. FILGRASTIM [Concomitant]
     Active Substance: FILGRASTIM
     Indication: Neutrophil count decreased
     Dosage: 30 INTERNATIONAL UNIT DAILY, FREQUENCY NOT PROVIDED
     Route: 058
     Dates: start: 20230906
  15. ACETAMINOPHEN [Concomitant]
     Active Substance: ACETAMINOPHEN
     Indication: Analgesic therapy
     Dosage: 1000 MILLIGRAM, QID
     Route: 048
     Dates: start: 20230922
  16. ACETAMINOPHEN [Concomitant]
     Active Substance: ACETAMINOPHEN
     Indication: Antipyresis
  17. IMBRUVICA [Concomitant]
     Active Substance: IBRUTINIB
     Indication: Neoplasm malignant
     Dosage: 420 MILLIGRAM, QD
     Route: 048
     Dates: start: 20230927
  18. VITAMIN B COMPLEX [Concomitant]
     Active Substance: CYANOCOBALAMIN\DEXPANTHENOL\NIACINAMIDE\PYRIDOXINE HYDROCHLORIDE\RIBOFLAVIN 5^-PHOSPHATE SODIUM\THIA
     Indication: Vitamin supplementation
     Dosage: 1 DOSAGE FORM, QD; STRENGTH: 1 TABLET
     Route: 048
     Dates: start: 20231001

REACTIONS (2)
  - Pyrexia [Not Recovered/Not Resolved]
  - Hypercalcaemia [Recovering/Resolving]

NARRATIVE: CASE EVENT DATE: 20231021
